FAERS Safety Report 7968758-2 (Version None)
Quarter: 2011Q4

REPORT INFORMATION
  Report Type: 
  Country: None (occurrence: None)
  Receive Date: 20111122
  Receipt Date: 20110803
  Transmission Date: 20120403
  Serious: Yes (Other)
  Sender: FDA-Public Use
  Company Number: PHHY2011US65555

PATIENT
  Age: 37 Year
  Sex: Female

DRUGS (12)
  1. BACLOFEN [Concomitant]
  2. OXYBUTYNIN [Concomitant]
  3. CAMELLIA SINENSIS (CAMELLIA SINENSIS, TEA, GREEN) [Concomitant]
  4. CRANBERRY EXTRACT, 500 MG [Concomitant]
  5. GILENYA [Suspect]
     Indication: MULTIPLE SCLEROSIS
     Dosage: 0.5MG/DAILY
     Dates: start: 20110328, end: 20110518
  6. SUMATRIPTAN (SUMATRIPTAN) [Concomitant]
  7. LEVONORGESTREL [Concomitant]
  8. VITMIN D (ERGOCALCIFEROL) [Concomitant]
  9. 5- HTP CAPSULE [Concomitant]
  10. VITAMIN B12 [Concomitant]
  11. MULTI-VITAMINS (CALCIUM PANTOTHENATE, FOLIC ACID, VITAMINS NOS) [Concomitant]
  12. REBIF [Suspect]
     Dosage: 22 UG

REACTIONS (3)
  - UVEITIS [None]
  - MACULAR OEDEMA [None]
  - VITREOUS FLOATERS [None]
